FAERS Safety Report 7347574-9 (Version None)
Quarter: 2011Q1

REPORT INFORMATION
  Report Type: 
  Country: None (occurrence: None)
  Receive Date: 20110311
  Receipt Date: 20110307
  Transmission Date: 20110831
  Serious: Yes (Other)
  Sender: FDA-Public Use
  Company Number: CH-BRISTOL-MYERS SQUIBB COMPANY-15573132

PATIENT
  Age: 45 Year
  Sex: Female

DRUGS (4)
  1. PREDNISONE TAB [Concomitant]
  2. ORENCIA [Suspect]
     Indication: RHEUMATOID ARTHRITIS
     Dosage: FIRST INFUSION OF ORENCIA 500MG INFUSION,
     Route: 042
     Dates: start: 20110215, end: 20110215
  3. CALCIUM + VITAMIN D [Concomitant]
  4. METHOTREXATE [Concomitant]
     Route: 048

REACTIONS (4)
  - EYELID PTOSIS [None]
  - DYSKINESIA [None]
  - MUSCULAR WEAKNESS [None]
  - MYALGIA [None]
